FAERS Safety Report 18850223 (Version 2)
Quarter: 2021Q1

REPORT INFORMATION
  Report Type: Spontaneous
  Country: FR (occurrence: FR)
  Receive Date: 20210204
  Receipt Date: 20210210
  Transmission Date: 20210420
  Serious: Yes (Hospitalization)
  Sender: FDA-Public Use
  Company Number: FR-JNJFOC-20210203377

PATIENT
  Age: 79 Year
  Sex: Male

DRUGS (5)
  1. FLUOROURACILE [Suspect]
     Active Substance: FLUOROURACIL
     Indication: PANCREATIC CARCINOMA
     Dosage: 1800MG / 48H
     Route: 042
     Dates: start: 20181106, end: 20190521
  2. OXALIPLATINE [Suspect]
     Active Substance: OXALIPLATIN
     Indication: PANCREATIC CARCINOMA
     Route: 042
     Dates: start: 20181106, end: 20190521
  3. RIVAROXABAN [Suspect]
     Active Substance: RIVAROXABAN
     Indication: BLOOD DISORDER PROPHYLAXIS
     Route: 048
     Dates: start: 20190412, end: 20200103
  4. LEXOMIL [Suspect]
     Active Substance: BROMAZEPAM
     Indication: ANXIETY
     Route: 048
     Dates: start: 20190412, end: 20200103
  5. FENTANYL. [Suspect]
     Active Substance: FENTANYL
     Indication: PAIN
     Route: 065
     Dates: start: 20190412, end: 20200103

REACTIONS (3)
  - Purpura [Not Recovered/Not Resolved]
  - Rash papular [Not Recovered/Not Resolved]
  - Toxic skin eruption [Not Recovered/Not Resolved]

NARRATIVE: CASE EVENT DATE: 20190507
